FAERS Safety Report 8218181-0 (Version None)
Quarter: 2012Q1

REPORT INFORMATION
  Report Type: 
  Country: None (occurrence: None)
  Receive Date: 20120319
  Receipt Date: 20120312
  Transmission Date: 20120608
  Serious: Yes (Hospitalization)
  Sender: FDA-Public Use
  Company Number: US-AMGEN-USASP2011063540

PATIENT
  Sex: Male
  Weight: 65.76 kg

DRUGS (6)
  1. XGEVA [Suspect]
     Indication: PRODUCT USED FOR UNKNOWN INDICATION
     Dosage: UNK UNK, ONE TIME DOSE
     Route: 058
     Dates: start: 20111006
  2. PRILOSEC [Concomitant]
  3. TERAZOSIN HCL [Concomitant]
  4. XGEVA [Suspect]
     Dosage: UNK UNK, ONE TIME DOSE
     Route: 058
     Dates: start: 20120223
  5. SIMVASTATIN [Concomitant]
  6. ATENOLOL [Concomitant]

REACTIONS (4)
  - HYPERKALAEMIA [None]
  - BLOOD CREATININE ABNORMAL [None]
  - HYPOCALCAEMIA [None]
  - BLOOD UREA ABNORMAL [None]
